FAERS Safety Report 9281373 (Version 1)
Quarter: 2013Q2

REPORT INFORMATION
  Report Type: Spontaneous
  Country: US (occurrence: US)
  Receive Date: 20130509
  Receipt Date: 20130509
  Transmission Date: 20140414
  Serious: No
  Sender: FDA-Public Use
  Company Number: US-009507513-1305USA004857

PATIENT
  Sex: Male

DRUGS (2)
  1. DR. SCHOLL^S ODOR DESTROYERS ALL DAY DEODORANT POWDER [Suspect]
     Indication: HYPERHIDROSIS
     Dosage: UNK, UNKNOWN
     Route: 061
  2. DR. SCHOLL^S ODOR DESTROYERS ALL DAY DEODORANT POWDER [Suspect]
     Indication: SKIN ODOUR ABNORMAL

REACTIONS (1)
  - Drug ineffective [Unknown]
